FAERS Safety Report 24715659 (Version 1)
Quarter: 2024Q4

REPORT INFORMATION
  Report Type: Report from Study
  Country: US (occurrence: None)
  Receive Date: 20241210
  Receipt Date: 20241210
  Transmission Date: 20250115
  Serious: Yes (Other)
  Sender: MAIA PHARMACEUTICALS
  Company Number: US-MAIA Pharmaceuticals, Inc.-MAI202412-000084

PATIENT
  Sex: Female

DRUGS (1)
  1. BACLOFEN [Suspect]
     Active Substance: BACLOFEN
     Indication: Alcohol use disorder
     Dosage: UNKNOWN
     Route: 065

REACTIONS (2)
  - Hepatocellular injury [Recovered/Resolved]
  - Product use in unapproved indication [Unknown]
